FAERS Safety Report 7833795-5 (Version None)
Quarter: 2011Q4

REPORT INFORMATION
  Report Type: 
  Country: None (occurrence: None)
  Receive Date: 20111024
  Receipt Date: 20111019
  Transmission Date: 20120403
  Serious: Yes (Hospitalization, Other)
  Sender: FDA-Public Use
  Company Number: US-ROCHE-784879

PATIENT
  Sex: Male
  Weight: 45.4 kg

DRUGS (3)
  1. DOXYCYCLINE [Concomitant]
     Indication: ACNE CYSTIC
     Route: 048
     Dates: start: 19991005
  2. ACCUTANE [Suspect]
  3. ACCUTANE [Suspect]
     Indication: ACNE CYSTIC
     Dosage: 10 DOSES
     Route: 065
     Dates: start: 19991017, end: 20000216

REACTIONS (6)
  - INFLAMMATORY BOWEL DISEASE [None]
  - ARTHRITIS [None]
  - ANXIETY [None]
  - HEADACHE [None]
  - CROHN'S DISEASE [None]
  - DEPRESSION [None]
